FAERS Safety Report 7981278-4 (Version None)
Quarter: 2011Q4

REPORT INFORMATION
  Report Type: 
  Country: None (occurrence: None)
  Receive Date: 20111215
  Receipt Date: 20111205
  Transmission Date: 20120403
  Serious: Yes (Other)
  Sender: FDA-Public Use
  Company Number: US-BAYER-2011-042527

PATIENT
  Age: 19 Year
  Sex: Female
  Weight: 77.098 kg

DRUGS (6)
  1. ACCUTANE [Concomitant]
  2. APAP W/ CODEINE [Concomitant]
  3. KETOROLAC TROMETHAMINE [Concomitant]
  4. YAZ [Suspect]
     Indication: CONTRACEPTION
     Dosage: UNK
     Dates: start: 20080301, end: 20081101
  5. YAZ [Suspect]
     Indication: ACNE
  6. SOTRET [Concomitant]

REACTIONS (6)
  - PAIN [None]
  - CHOLELITHIASIS [None]
  - CHOLECYSTITIS [None]
  - EMOTIONAL DISTRESS [None]
  - INJURY [None]
  - ANXIETY [None]
